FAERS Safety Report 5609962-8 (Version None)
Quarter: 2008Q1

REPORT INFORMATION
  Report Type: 
  Country: None (occurrence: None)
  Receive Date: 20080131
  Receipt Date: 20071126
  Transmission Date: 20080703
  Serious: No
  Sender: FDA-Public Use
  Company Number: US-BAYER-200715347NA

PATIENT
  Age: 16 Year
  Sex: Female
  Weight: 65 kg

DRUGS (3)
  1. YAZ [Suspect]
     Indication: PREMENSTRUAL SYNDROME
     Dosage: AS USED: 1 DF
     Route: 048
     Dates: start: 20070801, end: 20071001
  2. FEXOFENADINE [Concomitant]
     Indication: HYPERSENSITIVITY
     Dates: start: 20071001
  3. FLUTICAFOE NASAL SPRAY [Concomitant]
     Indication: HYPERSENSITIVITY
     Dates: start: 20071001

REACTIONS (2)
  - POLYMENORRHOEA [None]
  - WEIGHT INCREASED [None]
